FAERS Safety Report 5001966-1 (Version None)
Quarter: 2006Q2

REPORT INFORMATION
  Report Type: 
  Country: None (occurrence: None)
  Receive Date: 20060515
  Receipt Date: 20060131
  Transmission Date: 20061013
  Serious: Yes (Hospitalization, Disabling)
  Sender: FDA-Public Use
  Company Number: US-MERCK-0602USA00101

PATIENT
  Sex: Male
  Weight: 82 kg

DRUGS (7)
  1. VIOXX [Suspect]
     Indication: OSTEOARTHRITIS
     Route: 048
  2. VIOXX [Suspect]
     Route: 048
  3. ALEVE (CAPLET) [Concomitant]
     Route: 065
  4. METOPROLOL [Concomitant]
     Route: 065
  5. PROSCAR [Concomitant]
     Route: 065
  6. ZOCOR [Concomitant]
     Route: 065
  7. RANITIDINE-BC [Concomitant]
     Route: 065

REACTIONS (11)
  - ANHEDONIA [None]
  - ANXIETY [None]
  - AORTIC ANEURYSM [None]
  - CARDIOVASCULAR DISORDER [None]
  - CAROTID ARTERY OCCLUSION [None]
  - DEPRESSION [None]
  - HEART RATE DECREASED [None]
  - HIATUS HERNIA [None]
  - LIFE EXPECTANCY SHORTENED [None]
  - MYOCARDIAL INFARCTION [None]
  - PAIN [None]
